FAERS Safety Report 25299929 (Version 1)
Quarter: 2025Q2

REPORT INFORMATION
  Report Type: Spontaneous
  Country: US (occurrence: None)
  Receive Date: 20250510
  Receipt Date: 20250510
  Transmission Date: 20250716
  Serious: Yes (Disabling)
  Sender: FDA-CTU
  Company Number: None

PATIENT
  Age: 31 Year
  Sex: Female
  Weight: 76.5 kg

DRUGS (1)
  1. CIPROFLOXACIN [Suspect]
     Active Substance: CIPROFLOXACIN
     Indication: Ear infection
     Dates: start: 20161115, end: 20161210

REACTIONS (17)
  - Injury [None]
  - Nervous system disorder [None]
  - Neuropathy peripheral [None]
  - Arthralgia [None]
  - Neuralgia [None]
  - Diarrhoea [None]
  - Vaginal disorder [None]
  - Connective tissue disorder [None]
  - Insomnia [None]
  - Rapid eye movement sleep behaviour disorder [None]
  - Fatigue [None]
  - Hyperacusis [None]
  - Muscular weakness [None]
  - Muscle twitching [None]
  - Memory impairment [None]
  - Mental impairment [None]
  - Anxiety [None]

NARRATIVE: CASE EVENT DATE: 20170202
